FAERS Safety Report 21897270 (Version 1)
Quarter: 2023Q1

REPORT INFORMATION
  Report Type: Report from Study
  Country: JP (occurrence: JP)
  Receive Date: 20230123
  Receipt Date: 20230123
  Transmission Date: 20230417
  Serious: Yes (Hospitalization)
  Sender: FDA-Public Use
  Company Number: JP-ORPHANEU-2019001387

PATIENT

DRUGS (19)
  1. CYSTADANE [Suspect]
     Active Substance: BETAINE
     Indication: Homocystinuria
     Dosage: 0.65 GRAM, BID
     Route: 048
     Dates: start: 20151222, end: 20160125
  2. CYSTADANE [Suspect]
     Active Substance: BETAINE
     Dosage: 0.75 GRAM, BID
     Route: 048
     Dates: start: 20160126, end: 20160222
  3. CYSTADANE [Suspect]
     Active Substance: BETAINE
     Dosage: 1 GRAM, BID
     Route: 048
     Dates: start: 20160223, end: 20161003
  4. CYSTADANE [Suspect]
     Active Substance: BETAINE
     Dosage: 1.5 GRAM, BID
     Route: 048
     Dates: start: 20161004, end: 20200217
  5. CYSTADANE [Suspect]
     Active Substance: BETAINE
     Dosage: 2 GRAM, BID
     Route: 048
     Dates: start: 20200218
  6. TEGRETOL [Concomitant]
     Active Substance: CARBAMAZEPINE
     Indication: Disease complication
     Dosage: DAILY DOSE 30 MG DEVIDED IN TWO DOSES, BID
     Route: 048
  7. TEGRETOL [Concomitant]
     Active Substance: CARBAMAZEPINE
     Indication: Product used for unknown indication
     Dosage: 25 MILLIGRAM, BID (BEFORE START OF CYSTADANE)
     Route: 048
  8. TEGRETOL [Concomitant]
     Active Substance: CARBAMAZEPINE
     Dosage: 40 MILLIGRAM, BID (BEFORE START OF CYSTADANE)
     Route: 048
     Dates: end: 20160716
  9. TEGRETOL [Concomitant]
     Active Substance: CARBAMAZEPINE
     Dosage: 30 MILLIGRAM, BID
     Route: 048
     Dates: start: 20160717, end: 20160914
  10. ELCARTIN [Concomitant]
     Indication: Product used for unknown indication
     Dosage: DAILY DOSE OF 10 ML IN THREE TIMES A DAY
  11. FRESMIN S [HYDROXOCOBALAMIN ACETATE] [Concomitant]
     Indication: Product used for unknown indication
     Dosage: 1000 UG, QD (BEFORE START OF CYSTADANE)
     Route: 058
  12. BIOTIINI [Concomitant]
     Indication: Product used for unknown indication
     Dosage: 0.1 MILLIGRAM, QD
     Route: 048
     Dates: start: 20151228
  13. LEVOCARNITINE HYDROCHLORIDE [Concomitant]
     Active Substance: LEVOCARNITINE HYDROCHLORIDE
     Indication: Product used for unknown indication
     Dosage: 750 MILLIGRAM, TID (BEFORE THE START OF CYSTADANE)
     Route: 048
  14. LEVOCARNITINE [Concomitant]
     Active Substance: LEVOCARNITINE
     Indication: Product used for unknown indication
     Dosage: 15 MILLILITER, TID (BEFORE START OF CYSTADANE)
     Route: 048
  15. LEVOCARNITINE [Concomitant]
     Active Substance: LEVOCARNITINE
     Dosage: 7.5 MILLILITER, TID (BEFORE START OF CYSTADANE)
     Route: 048
     Dates: end: 20160711
  16. LEVOCARNITINE [Concomitant]
     Active Substance: LEVOCARNITINE
     Dosage: 10 MILLILITER, TID
     Route: 048
     Dates: start: 20160712, end: 20160914
  17. BANAN [Concomitant]
     Active Substance: CEFPODOXIME PROXETIL
     Indication: Disease complication
     Dosage: 70 MILLIGRAM, TID (BEFORE START OF CYSTADANE)
     Route: 048
     Dates: end: 20160624
  18. BIOTIN [Concomitant]
     Active Substance: BIOTIN
     Indication: Product used for unknown indication
     Dosage: 0.1 MILLILITER, QD (STARTED BEFORE CYSTADANE)
     Route: 048
  19. LAC-B GRANULAR POWDER N [Concomitant]
     Indication: Disease complication
     Dosage: 1.5 GRAM, TID (BEFORE START OF CYSTADANE)
     Route: 048
     Dates: end: 20170711

REACTIONS (1)
  - Dehydration [Recovered/Resolved]

NARRATIVE: CASE EVENT DATE: 20160913
